FAERS Safety Report 4446096-2 (Version None)
Quarter: 2004Q3

REPORT INFORMATION
  Report Type: 
  Country: None (occurrence: None)
  Receive Date: 20040907
  Receipt Date: 20040820
  Transmission Date: 20050211
  Serious: Yes (Hospitalization)
  Sender: FDA-Public Use
  Company Number: 171972

PATIENT
  Age: 31 Year
  Sex: Female

DRUGS (1)
  1. AVONEX [Suspect]
     Indication: MULTIPLE SCLEROSIS
     Dates: start: 20020111

REACTIONS (5)
  - CONVULSION [None]
  - DIFFICULTY IN WALKING [None]
  - LOSS OF CONSCIOUSNESS [None]
  - LUMBAR PUNCTURE HEADACHE [None]
  - MYALGIA [None]
